FAERS Safety Report 22397700 (Version 1)
Quarter: 2023Q2

REPORT INFORMATION
  Report Type: Spontaneous
  Country: US (occurrence: US)
  Receive Date: 20230602
  Receipt Date: 20230602
  Transmission Date: 20230722
  Serious: No
  Sender: FDA-Public Use
  Company Number: US-JNJFOC-20230561314

PATIENT
  Age: 13 Year
  Sex: Male

DRUGS (2)
  1. RISPERDAL M-TAB [Suspect]
     Active Substance: RISPERIDONE
     Indication: Product used for unknown indication
     Dosage: 1 MG TWICE A DAY
     Route: 048
     Dates: start: 20150420
  2. RISPERDAL M-TAB [Suspect]
     Active Substance: RISPERIDONE
     Dosage: 0.5 MG TWICE A DAY ( PATIENT WAS TAKING DIFFERENTLY)
     Route: 048
     Dates: start: 20150506

REACTIONS (1)
  - Product administration error [Unknown]

NARRATIVE: CASE EVENT DATE: 20150506
